FAERS Safety Report 16567779 (Version 1)
Quarter: 2019Q3

REPORT INFORMATION
  Report Type: Spontaneous
  Country: US (occurrence: US)
  Receive Date: 20190712
  Receipt Date: 20190712
  Transmission Date: 20191004
  Serious: Yes (Hospitalization, Other)
  Sender: FDA-Public Use
  Company Number: US-PFIZER INC-2019287580

PATIENT
  Age: 32 Year
  Sex: Male
  Weight: 142.88 kg

DRUGS (2)
  1. KETOROLAC TROMETHAMINE. [Suspect]
     Active Substance: KETOROLAC TROMETHAMINE
     Indication: HEADACHE
     Dosage: UNK
     Route: 042
     Dates: start: 20190625, end: 20190625
  2. CYCLOBENZAPRINE. [Concomitant]
     Active Substance: CYCLOBENZAPRINE
     Indication: MUSCLE SPASMS
     Dosage: 10 MG, AS NEEDED
     Route: 048

REACTIONS (7)
  - Pharyngeal swelling [Recovered/Resolved]
  - Chest pain [Recovered/Resolved]
  - Anaphylactic shock [Recovered/Resolved]
  - Diplopia [Recovered/Resolved]
  - Respiratory arrest [Recovered/Resolved]
  - Troponin I increased [Unknown]
  - Chest discomfort [Recovered/Resolved]

NARRATIVE: CASE EVENT DATE: 20190625
